FAERS Safety Report 6496709-9 (Version None)
Quarter: 2009Q4

REPORT INFORMATION
  Report Type: 
  Country: None (occurrence: None)
  Receive Date: 20091211
  Receipt Date: 20091130
  Transmission Date: 20100525
  Serious: Yes (Other)
  Sender: FDA-Public Use
  Company Number: AVE_00903_2009

PATIENT
  Age: 72 Year
  Sex: Male

DRUGS (8)
  1. CLONIDINE [Suspect]
     Indication: HYPERTENSION
     Dosage: (0.2 MG QD, VIA A 1/WEEKLY PATCH TRANSDERMAL)
     Route: 062
     Dates: start: 20090901, end: 20090101
  2. CLONIDINE [Suspect]
     Indication: HYPERTENSION
     Dosage: (0.1 MG QD, VIA A 1/WEEKLY PATCH [^CUT THE PATCH IN HALF^] TRANSDERMAL)
     Route: 062
     Dates: start: 20090101, end: 20091105
  3. UNSPECIFIED MEDICATIONS [Suspect]
     Indication: DIABETES MELLITUS
     Dosage: (DF)
  4. UNSPECIFIED MEDICATIONS [Suspect]
     Indication: HEART RATE INCREASED
     Dosage: (DF)
  5. CLONIDINE [Concomitant]
  6. VERAPAMIL [Concomitant]
  7. HYDROCHLOROTHIAZIDE [Concomitant]
  8. NIFEDIPINE [Concomitant]

REACTIONS (10)
  - BLOOD PRESSURE INCREASED [None]
  - DRUG EFFECT DECREASED [None]
  - HEART RATE DECREASED [None]
  - POTENTIATING DRUG INTERACTION [None]
  - PRODUCT ADHESION ISSUE [None]
  - PRODUCT QUALITY ISSUE [None]
  - PRODUCT SIZE ISSUE [None]
  - PRODUCT SUBSTITUTION ISSUE [None]
  - THERAPEUTIC RESPONSE UNEXPECTED [None]
  - WRONG TECHNIQUE IN DRUG USAGE PROCESS [None]
